FAERS Safety Report 10217741 (Version 1)
Quarter: 2014Q2

REPORT INFORMATION
  Report Type: Spontaneous
  Country: CA (occurrence: CA)
  Receive Date: 20140604
  Receipt Date: 20140604
  Transmission Date: 20141212
  Serious: Yes (Other)
  Sender: FDA-Public Use
  Company Number: CA-GE HEALTHCARE MEDICAL DIAGNOSTICS-VISP-PR-1405S-0237

PATIENT
  Age: 40 Year
  Sex: Female

DRUGS (10)
  1. VISIPAQUE [Suspect]
     Indication: LYMPHADENOPATHY
     Route: 042
     Dates: start: 20140522, end: 20140522
  2. VISIPAQUE [Suspect]
     Indication: LYMPHOMA
  3. VISIPAQUE [Suspect]
     Indication: DIAGNOSTIC PROCEDURE
  4. NORTRIPTYLINE HYDROCHLORIDE [Concomitant]
  5. JAMP FERROUS SULFATE [Concomitant]
  6. SYNTHROID [Concomitant]
  7. LANTUS PENFILL [Concomitant]
  8. HUMULIN R CARTRIDGE [Concomitant]
  9. METFORMIN [Concomitant]
  10. BARIUM [Concomitant]
     Dates: start: 201405

REACTIONS (8)
  - Presyncope [Unknown]
  - Palpitations [Unknown]
  - Feeling cold [Unknown]
  - Cold sweat [Unknown]
  - Abdominal pain upper [Unknown]
  - Dyspnoea [Unknown]
  - Chest pain [Unknown]
  - Vomiting [Unknown]
